FAERS Safety Report 14110854 (Version 2)
Quarter: 2018Q1

REPORT INFORMATION
  Report Type: Report from Study
  Country: CA (occurrence: CA)
  Receive Date: 20171020
  Receipt Date: 20180109
  Transmission Date: 20180508
  Serious: Yes (Hospitalization)
  Sender: FDA-Public Use
  Company Number: CA-JNJFOC-20171014879

PATIENT
  Age: 13 Year
  Sex: Male

DRUGS (1)
  1. REMICADE [Suspect]
     Active Substance: INFLIXIMAB
     Indication: CROHN^S DISEASE
     Dosage: STRENGTH = 100 MG
     Route: 042
     Dates: start: 20170118

REACTIONS (10)
  - Off label use [Unknown]
  - Psychomotor skills impaired [Unknown]
  - Vision blurred [Unknown]
  - Product use issue [Unknown]
  - Incoherent [Recovered/Resolved]
  - Disorientation [Unknown]
  - Back pain [Unknown]
  - Fall [Unknown]
  - Headache [Not Recovered/Not Resolved]
  - White blood cell count increased [Unknown]

NARRATIVE: CASE EVENT DATE: 20170118
